FAERS Safety Report 14242765 (Version 1)
Quarter: 2017Q4

REPORT INFORMATION
  Report Type: Report from Study
  Country: US (occurrence: US)
  Receive Date: 20171201
  Receipt Date: 20171201
  Transmission Date: 20180321
  Serious: Yes (Other)
  Sender: FDA-Public Use
  Company Number: US-PURDUE-USA-2017-0141770

PATIENT
  Age: 46 Year
  Sex: Male

DRUGS (1)
  1. HYDROCODONE BITARTRATE. [Suspect]
     Active Substance: HYDROCODONE BITARTRATE
     Indication: INTERVERTEBRAL DISC DISPLACEMENT
     Dosage: 80 MG, DAILY
     Route: 048

REACTIONS (2)
  - Fall [Unknown]
  - Ligament rupture [Unknown]

NARRATIVE: CASE EVENT DATE: 20171020
